FAERS Safety Report 13988783 (Version 1)
Quarter: 2017Q3

REPORT INFORMATION
  Report Type: Spontaneous
  Country: US (occurrence: US)
  Receive Date: 20170919
  Receipt Date: 20170919
  Transmission Date: 20171128
  Serious: Yes (Hospitalization)
  Sender: FDA-Public Use
  Company Number: None

PATIENT
  Age: 77 Year
  Sex: Male
  Weight: 49.5 kg

DRUGS (4)
  1. CARBADOPA/LEVODOPA SR [Concomitant]
  2. TROSPIUM [Concomitant]
     Active Substance: TROSPIUM
  3. NEUPRO [Suspect]
     Active Substance: ROTIGOTINE
     Indication: PARKINSON^S DISEASE
     Route: 062
  4. CARBADOPA/LEVODOPA IR [Concomitant]

REACTIONS (1)
  - Anaemia [None]

NARRATIVE: CASE EVENT DATE: 20170905
